FAERS Safety Report 8172989-9 (Version None)
Quarter: 2012Q1

REPORT INFORMATION
  Report Type: 
  Country: None (occurrence: None)
  Receive Date: 20120223
  Receipt Date: 20120206
  Transmission Date: 20120608
  Serious: Yes (Other)
  Sender: FDA-Public Use
  Company Number: CF 1777499

PATIENT
  Age: 35 Year
  Sex: Female

DRUGS (1)
  1. BLINK TEARS LUBRICATING EYE DROPS [Suspect]
     Indication: DRY EYE
     Dosage: 1 DROP IN EYES AS NEEDED
     Dates: start: 20120116, end: 20120123

REACTIONS (4)
  - CONDITION AGGRAVATED [None]
  - OCULAR HYPERAEMIA [None]
  - EYE INFECTION [None]
  - EYE DISCHARGE [None]
